FAERS Safety Report 18399168 (Version 2)
Quarter: 2020Q4

REPORT INFORMATION
  Report Type: Spontaneous
  Country: LB (occurrence: LB)
  Receive Date: 20201019
  Receipt Date: 20201111
  Transmission Date: 20210114
  Serious: Yes (Death)
  Sender: FDA-Public Use
  Company Number: LB-NOVOPROD-759042

PATIENT
  Sex: Female
  Weight: 100 kg

DRUGS (1)
  1. NOVOSEVEN [Suspect]
     Active Substance: COAGULATION FACTOR VIIA RECOMBINANT HUMAN
     Indication: POST PROCEDURAL HAEMORRHAGE
     Dosage: 1 MG
     Route: 065

REACTIONS (2)
  - Off label use [Unknown]
  - Accidental underdose [Fatal]
